FAERS Safety Report 9850096 (Version 1)
Quarter: 2014Q1

REPORT INFORMATION
  Report Type: Spontaneous
  Country: US (occurrence: None)
  Receive Date: 20140124
  Receipt Date: 20140124
  Transmission Date: 20141002
  Serious: Yes (Life-Threatening, Hospitalization, Disabling)
  Sender: FDA-Public Use
  Company Number: None

PATIENT
  Age: 77 Year
  Sex: Female
  Weight: 52.16 kg

DRUGS (9)
  1. SULFAMETHOXAZOLE/TMP DS [Suspect]
     Indication: URINARY TRACT INFECTION
     Dosage: 1 TABLET, TWICE A DAY, BY MOUTH
     Route: 048
  2. DONEPEZIL [Concomitant]
  3. RISPERIDONE [Concomitant]
  4. LORAZEPAM [Concomitant]
  5. SERTRALINE [Concomitant]
  6. METOPROLOL TARTRATE [Concomitant]
  7. AMLODIPINE BESYLATE [Concomitant]
  8. SUCRALFATE [Concomitant]
  9. VIACTIV CALCIUM PLUS D [Concomitant]

REACTIONS (1)
  - Meningitis [None]
